FAERS Safety Report 22125312 (Version 16)
Quarter: 2024Q2

REPORT INFORMATION
  Report Type: Spontaneous
  Country: US (occurrence: US)
  Receive Date: 20230322
  Receipt Date: 20240503
  Transmission Date: 20240716
  Serious: No
  Sender: FDA-Public Use
  Company Number: US-PFIZER INC-PV202300053314

PATIENT
  Age: 68 Year
  Sex: Female
  Weight: 68.04 kg

DRUGS (8)
  1. BRAFTOVI [Suspect]
     Active Substance: ENCORAFENIB
     Indication: Malignant melanoma
     Dosage: TAKE 2 CAPSULES (150 MG) 3 TIMES DAILY . THIS DOSE/SCHEDULE IS BASED ON PATIENT^S BETTER TOLERANCE
     Route: 048
  2. BRAFTOVI [Suspect]
     Active Substance: ENCORAFENIB
     Indication: Metastatic malignant melanoma
     Dosage: 450 MG, DAILY (TAKES SIX 75MG CAPSULES DAILY)
     Dates: start: 202205
  3. BRAFTOVI [Suspect]
     Active Substance: ENCORAFENIB
     Dosage: 75 MG
  4. MEKTOVI [Suspect]
     Active Substance: BINIMETINIB
     Indication: Malignant melanoma
     Dosage: TAKE 2 TABLETS (30 MG) BY MOUTH 3 (THREE) TIMES DAILY
     Route: 048
  5. MEKTOVI [Suspect]
     Active Substance: BINIMETINIB
     Indication: Metastatic malignant melanoma
     Dosage: 90 MG, DAILY (TAKES SIX 15MG PILLS DAILY)
     Dates: start: 202205
  6. MEKTOVI [Suspect]
     Active Substance: BINIMETINIB
     Dosage: 15 MG
  7. PREDNISONE [Concomitant]
     Active Substance: PREDNISONE
     Indication: Rheumatoid arthritis
     Dosage: 5 MG, 1X/DAY
  8. PREDNISONE [Concomitant]
     Active Substance: PREDNISONE
     Dosage: 5 MG, 2X/DAY (BUT IF SHE HAS FLARE UP OF RHEUMATOID ARTHRITIS WILL TAKE TWICE A DAY)

REACTIONS (4)
  - Off label use [Unknown]
  - Illness [Unknown]
  - Crying [Unknown]
  - Malaise [Unknown]
